FAERS Safety Report 8238206-6 (Version None)
Quarter: 2012Q1

REPORT INFORMATION
  Report Type: 
  Country: None (occurrence: None)
  Receive Date: 20120327
  Receipt Date: 20120320
  Transmission Date: 20120608
  Serious: Yes (Life-Threatening, Hospitalization, Other)
  Sender: FDA-Public Use
  Company Number: PHEH2012US003055

PATIENT
  Sex: Female
  Weight: 39.91 kg

DRUGS (6)
  1. SERTRALINE HYDROCHLORIDE [Concomitant]
     Dosage: 50 MG DAILY
     Route: 048
  2. VITAMIN D [Concomitant]
     Dosage: 400 IU DAILY
  3. COMBIVENT [Concomitant]
     Dosage: 2 DF, PUFFS DAILY
  4. LEVAQUIN [Concomitant]
     Dosage: 500 MG DAILY
     Route: 048
  5. SYMBICOCT [Concomitant]
     Dosage: 2 DF, PUFFS DAILY
     Route: 048
  6. GLEEVEC [Suspect]
     Indication: CHRONIC MYELOID LEUKAEMIA
     Dosage: 400MG DAILY
     Route: 048

REACTIONS (36)
  - CARDIAC FAILURE CONGESTIVE [None]
  - OEDEMA PERIPHERAL [None]
  - RESPIRATORY DISTRESS [None]
  - TACHYCARDIA [None]
  - TOXICITY TO VARIOUS AGENTS [None]
  - EYE SWELLING [None]
  - PULMONARY OEDEMA [None]
  - RHONCHI [None]
  - BLOOD PRESSURE DECREASED [None]
  - URINE FLOW DECREASED [None]
  - URINARY INCONTINENCE [None]
  - ABDOMINAL DISTENSION [None]
  - IMMUNOSUPPRESSION [None]
  - INFECTION [None]
  - PLATELET COUNT DECREASED [None]
  - FAECAL INCONTINENCE [None]
  - HAEMOGLOBIN DECREASED [None]
  - NEUTROPHIL COUNT INCREASED [None]
  - LUNG CARCINOMA CELL TYPE UNSPECIFIED RECURRENT [None]
  - MENTAL STATUS CHANGES [None]
  - LEUKAEMIA RECURRENT [None]
  - RESPIRATORY FAILURE [None]
  - PLEURAL EFFUSION [None]
  - BRAIN NATRIURETIC PEPTIDE INCREASED [None]
  - BLOOD GLUCOSE INCREASED [None]
  - MALAISE [None]
  - DYSARTHRIA [None]
  - HYPOTHERMIA [None]
  - HYPOXIA [None]
  - BLOOD CHLORIDE INCREASED [None]
  - GRIMACING [None]
  - CONFUSIONAL STATE [None]
  - SEPSIS SYNDROME [None]
  - FEELING HOT [None]
  - PYREXIA [None]
  - BLOOD CREATININE INCREASED [None]
